FAERS Safety Report 8396353-2 (Version None)
Quarter: 2012Q2

REPORT INFORMATION
  Report Type: 
  Country: None (occurrence: None)
  Receive Date: 20120530
  Receipt Date: 20120524
  Transmission Date: 20120825
  Serious: Yes (Disabling)
  Sender: FDA-Public Use
  Company Number: GB-MERCK-1205USA04846

PATIENT
  Age: 64 Year
  Sex: Male
  Weight: 72 kg

DRUGS (5)
  1. GLICLAZIDE [Concomitant]
     Route: 065
  2. METFORMIN [Concomitant]
     Route: 065
  3. PERINDOPRIL [Concomitant]
     Route: 065
  4. AMLODIPINE [Concomitant]
     Route: 065
  5. JANUVIA [Suspect]
     Route: 048
     Dates: start: 20110306

REACTIONS (3)
  - OEDEMA [None]
  - OEDEMA PERIPHERAL [None]
  - MOBILITY DECREASED [None]
